FAERS Safety Report 4423770-5 (Version None)
Quarter: 2004Q3

REPORT INFORMATION
  Report Type: 
  Country: None (occurrence: None)
  Receive Date: 20040806
  Receipt Date: 20040721
  Transmission Date: 20050211
  Serious: Yes (Hospitalization)
  Sender: FDA-Public Use
  Company Number: FR_040704479

PATIENT
  Age: 58 Year
  Sex: Female

DRUGS (5)
  1. PROZAC [Suspect]
     Indication: ANXIETY
     Dosage: 20 MG/ 1 DAY
     Dates: end: 20040212
  2. NOCTAMIDE (LORMETAZEPAM) [Concomitant]
  3. SULFARLEM (ANETHOLE TRITHIONE) [Concomitant]
  4. PARKINANE (TRIHEXYPHENIDYL HYDROCHLORIDE) [Concomitant]
  5. TRANXENE [Concomitant]

REACTIONS (5)
  - BLOOD CHLORIDE DECREASED [None]
  - BLOOD POTASSIUM DECREASED [None]
  - CONFUSIONAL STATE [None]
  - HYPONATRAEMIA [None]
  - POLYDIPSIA PSYCHOGENIC [None]
